FAERS Safety Report 7528026-X (Version None)
Quarter: 2011Q2

REPORT INFORMATION
  Report Type: 
  Country: None (occurrence: None)
  Receive Date: 20110531
  Receipt Date: 20110512
  Transmission Date: 20111010
  Serious: Yes (Life-Threatening, Hospitalization)
  Sender: FDA-Public Use
  Company Number: 2011MA004908

PATIENT
  Age: 53 Year
  Sex: Male

DRUGS (2)
  1. NAPROXEN [Suspect]
     Dosage: 500 MG; BID
  2. SERTRALINE HYDROCHLORIDE [Concomitant]

REACTIONS (6)
  - EPISTAXIS [None]
  - SQUAMOUS CELL CARCINOMA [None]
  - POST PROCEDURAL HAEMORRHAGE [None]
  - OBSTRUCTIVE AIRWAYS DISORDER [None]
  - OEDEMA MOUTH [None]
  - TOOTH EXTRACTION [None]
